FAERS Safety Report 6001896-2 (Version None)
Quarter: 2008Q4

REPORT INFORMATION
  Report Type: 
  Country: None (occurrence: None)
  Receive Date: 20081212
  Receipt Date: 20081203
  Transmission Date: 20090506
  Serious: Yes (Death, Hospitalization)
  Sender: FDA-Public Use
  Company Number: 2008AL010974

PATIENT
  Age: 48 Year
  Sex: Male

DRUGS (1)
  1. DIGOXIN [Suspect]
     Indication: CARDIAC DISORDER
     Dosage: PO
     Route: 048

REACTIONS (8)
  - ANGINA PECTORIS [None]
  - CARDIOMYOPATHY [None]
  - DYSPNOEA EXERTIONAL [None]
  - EJECTION FRACTION DECREASED [None]
  - EXPOSURE TO TOXIC AGENT [None]
  - LEFT VENTRICULAR DYSFUNCTION [None]
  - MULTIPLE INJURIES [None]
  - STRESS [None]
